FAERS Safety Report 4900792-9 (Version None)
Quarter: 2006Q1

REPORT INFORMATION
  Report Type: 
  Country: None (occurrence: None)
  Receive Date: 20060201
  Receipt Date: 20060119
  Transmission Date: 20060701
  Serious: Yes (Hospitalization, Other)
  Sender: FDA-Public Use
  Company Number: DE-GDP-0512561

PATIENT
  Age: 16 Year
  Sex: Female
  Weight: 71.2 kg

DRUGS (2)
  1. DIFFERIN [Suspect]
     Indication: ACNE CONGLOBATA
     Dosage: 1 APP QD TP
     Route: 061
     Dates: start: 20051123, end: 20051207
  2. MINOCYCLINE HCL [Suspect]
     Indication: ACNE CONGLOBATA
     Dosage: 50 MG QD PO
     Route: 048
     Dates: start: 20051123, end: 20051207

REACTIONS (10)
  - ANGIONEUROTIC OEDEMA [None]
  - BLISTER [None]
  - CERUMEN IMPACTION [None]
  - HEADACHE [None]
  - MYCOPLASMA INFECTION [None]
  - OEDEMA PERIPHERAL [None]
  - PRURITUS [None]
  - SCAR [None]
  - SKIN REACTION [None]
  - TYMPANIC MEMBRANE DISORDER [None]
